FAERS Safety Report 9919798 (Version 2)
Quarter: 2014Q2

REPORT INFORMATION
  Report Type: Spontaneous
  Country: DE (occurrence: DE)
  Receive Date: 20140224
  Receipt Date: 20140407
  Transmission Date: 20141212
  Serious: Yes (Other)
  Sender: FDA-Public Use
  Company Number: DE-GLAXOSMITHKLINE-D0082946A

PATIENT
  Sex: Male

DRUGS (9)
  1. RELVAR ELLIPTA (FLUTICASONE FUROATE/VILANTEROL) [Suspect]
     Indication: ASTHMA
     Route: 055
     Dates: start: 20140227, end: 20140324
  2. VIANI FORTE [Concomitant]
     Indication: ASTHMA
     Dosage: 1BLS TWICE PER DAY
     Route: 055
  3. GLYCOPYRRONIUM [Concomitant]
     Indication: ASTHMA
     Dosage: 44MCG IN THE MORNING
     Route: 055
  4. BRILIQUE [Concomitant]
     Dosage: 90MG TWICE PER DAY
     Route: 048
  5. VOLON [Concomitant]
     Route: 048
  6. MUCOSOLVAN RETARD [Concomitant]
     Route: 048
  7. RAMIPRIL [Concomitant]
     Dosage: 5MG TWICE PER DAY
     Route: 048
  8. ROFLUMILAST [Concomitant]
     Dosage: 500MCG IN THE MORNING
     Route: 048
  9. VERAPAMIL [Concomitant]
     Dosage: 40MG IN THE MORNING
     Route: 048

REACTIONS (8)
  - Pneumonia [Recovered/Resolved]
  - Haemoptysis [Recovered/Resolved]
  - Asthenia [Recovered/Resolved]
  - Arthralgia [Recovered/Resolved]
  - Cough [Recovered/Resolved]
  - Rhinitis [Recovered/Resolved]
  - Deep vein thrombosis [Recovered/Resolved]
  - Presyncope [Recovered/Resolved]
